FAERS Safety Report 9055767 (Version 1)
Quarter: 2013Q1

REPORT INFORMATION
  Report Type: Other
  Country: NL (occurrence: NL)
  Receive Date: 20130206
  Receipt Date: 20130206
  Transmission Date: 20140127
  Serious: Yes (Other)
  Sender: FDA-Public Use
  Company Number: NL-WATSON-2013-01590

PATIENT
  Sex: Male

DRUGS (1)
  1. METRONIDAZOLE (WATSON LABORATORIES) [Suspect]
     Indication: BACTERIAL INFECTION
     Dosage: 750 MG, DAILY
     Route: 048
     Dates: start: 201210

REACTIONS (1)
  - Paralysis [Recovered/Resolved]
